FAERS Safety Report 5940753-4 (Version None)
Quarter: 2008Q4

REPORT INFORMATION
  Report Type: 
  Country: None (occurrence: None)
  Receive Date: 20081104
  Receipt Date: 20081028
  Transmission Date: 20090506
  Serious: Yes (Other)
  Sender: FDA-Public Use
  Company Number: US-JNJFOC-20081007151

PATIENT
  Age: 85 Year
  Sex: Female
  Weight: 54.43 kg

DRUGS (12)
  1. EXTRA STRENGTH TYLENOL [Suspect]
     Route: 048
  2. EXTRA STRENGTH TYLENOL [Suspect]
     Indication: PAIN
     Route: 048
  3. TOPROL-XL [Concomitant]
     Indication: HYPERTENSION
  4. LEVOXYL [Concomitant]
  5. DIGOXIN [Concomitant]
  6. NAMENDA [Concomitant]
     Indication: DEMENTIA
  7. OS-CAL [Concomitant]
     Indication: OSTEOPOROSIS
  8. CENTRUM SILVER [Concomitant]
  9. ARICEPT [Concomitant]
     Indication: DEMENTIA ALZHEIMER'S TYPE
  10. CELEXA [Concomitant]
  11. SIMVASTATIN [Concomitant]
     Indication: BLOOD CHOLESTEROL INCREASED
  12. FOSAMAX [Concomitant]
     Indication: OSTEOPOROSIS

REACTIONS (2)
  - DRUG INEFFECTIVE [None]
  - HERPES ZOSTER [None]
